FAERS Safety Report 16328258 (Version 1)
Quarter: 2019Q2

REPORT INFORMATION
  Report Type: Spontaneous
  Country: US (occurrence: US)
  Receive Date: 20190518
  Receipt Date: 20190518
  Transmission Date: 20190711
  Serious: No
  Sender: FDA-Public Use
  Company Number: US-AUROBINDO-AUR-APL-2018-050721

PATIENT
  Age: 89 Year
  Sex: Female
  Weight: 77 kg

DRUGS (1)
  1. CEFUROXIME AXETIL. [Suspect]
     Active Substance: CEFUROXIME AXETIL
     Indication: CYSTITIS
     Dosage: 1 DOSAGE FORM
     Route: 065
     Dates: start: 20181005, end: 20181005

REACTIONS (1)
  - Dysuria [Recovered/Resolved]

NARRATIVE: CASE EVENT DATE: 20181005
